FAERS Safety Report 23286943 (Version 2)
Quarter: 2024Q4

REPORT INFORMATION
  Report Type: Spontaneous
  Country: PL (occurrence: PL)
  Receive Date: 20231212
  Receipt Date: 20241127
  Transmission Date: 20250114
  Serious: Yes (Hospitalization)
  Sender: GILEAD
  Company Number: PL-GILEAD-2023-0654232

PATIENT
  Age: 5 Year
  Sex: Female

DRUGS (2)
  1. BIKTARVY [Suspect]
     Active Substance: BICTEGRAVIR SODIUM\EMTRICITABINE\TENOFOVIR ALAFENAMIDE FUMARATE
     Indication: HIV infection
     Dosage: 1 DOSAGE FORM, QD
     Route: 065
     Dates: start: 202307
  2. ABACAVIR SULFATE\LAMIVUDINE\LOPINAVIR\RITONAVIR [Suspect]
     Active Substance: ABACAVIR SULFATE\LAMIVUDINE\LOPINAVIR\RITONAVIR
     Indication: HIV infection
     Dosage: UNK UNK, BID
     Route: 065

REACTIONS (2)
  - Transaminases increased [Unknown]
  - Hypergammaglobulinaemia [Unknown]
